FAERS Safety Report 4806778-7 (Version None)
Quarter: 2005Q4

REPORT INFORMATION
  Report Type: 
  Country: None (occurrence: None)
  Receive Date: 20051019
  Receipt Date: 20051019
  Transmission Date: 20060501
  Serious: No
  Sender: FDA-Public Use
  Company Number: None

PATIENT
  Age: 21 Year
  Sex: Male

DRUGS (1)
  1. SIMILASAN EAR WAX RELEASE, SIMILASANAG, SWITZERLAND [Suspect]

REACTIONS (4)
  - BURNS FIRST DEGREE [None]
  - BURNS SECOND DEGREE [None]
  - EAR DISORDER [None]
  - INSTILLATION SITE REACTION [None]
